FAERS Safety Report 7411400-X (Version None)
Quarter: 2011Q2

REPORT INFORMATION
  Report Type: 
  Country: None (occurrence: None)
  Receive Date: 20110413
  Receipt Date: 20100720
  Transmission Date: 20111010
  Serious: Yes (Life-Threatening)
  Sender: FDA-Public Use
  Company Number: US-BRISTOL-MYERS SQUIBB COMPANY-15200025

PATIENT
  Age: 44 Year
  Sex: Male

DRUGS (3)
  1. ERBITUX [Suspect]
     Dosage: 10 MIN IN THE INFUSION.
  2. ACETAMINOPHEN [Concomitant]
     Indication: PREMEDICATION
  3. BENADRYL [Concomitant]
     Indication: PREMEDICATION
     Route: 042

REACTIONS (1)
  - CARDIO-RESPIRATORY ARREST [None]
